FAERS Safety Report 22184477 (Version 1)
Quarter: 2023Q2

REPORT INFORMATION
  Report Type: Spontaneous
  Country: US (occurrence: US)
  Receive Date: 20230407
  Receipt Date: 20230407
  Transmission Date: 20230722
  Serious: Yes (Other)
  Sender: FDA-Public Use
  Company Number: US-NOVOPROD-1047421

PATIENT
  Sex: Female

DRUGS (1)
  1. OZEMPIC [Suspect]
     Active Substance: SEMAGLUTIDE
     Indication: Product used for unknown indication
     Dosage: UNK
     Route: 058

REACTIONS (7)
  - Loss of consciousness [Unknown]
  - Visual impairment [Unknown]
  - Cataract operation [Unknown]
  - Vomiting projectile [Recovered/Resolved]
  - Diarrhoea [Unknown]
  - Heart rate increased [Unknown]
  - Constipation [Unknown]
